FAERS Safety Report 21294028 (Version 3)
Quarter: 2022Q4

REPORT INFORMATION
  Report Type: Spontaneous
  Country: IT (occurrence: None)
  Receive Date: 20220905
  Receipt Date: 20221013
  Transmission Date: 20230112
  Serious: Yes (Death, Hospitalization)
  Sender: FDA-Public Use
  Company Number: IT-ROCHE-3173350

PATIENT
  Age: 74 Year
  Sex: Female

DRUGS (5)
  1. ROZLYTREK [Suspect]
     Active Substance: ENTRECTINIB
     Indication: Non-small cell lung cancer
     Route: 065
  2. ROZLYTREK [Suspect]
     Active Substance: ENTRECTINIB
     Indication: Lung neoplasm
     Route: 065
     Dates: start: 20220311, end: 20220413
  3. ATENOLOL [Concomitant]
     Active Substance: ATENOLOL
     Indication: Hypertension
     Dosage: 1/4 TB AT 8 AM
  4. RAMIPRIL [Concomitant]
     Active Substance: RAMIPRIL
     Indication: Hypertension
     Dosage: AT 8 AM
  5. ATORVASTATIN [Concomitant]
     Active Substance: ATORVASTATIN
     Indication: Dyslipidaemia
     Dosage: AT 8 AM

REACTIONS (2)
  - Disease progression [Fatal]
  - Ischaemic stroke [Unknown]

NARRATIVE: CASE EVENT DATE: 20220504
